FAERS Safety Report 4797438-X (Version None)
Quarter: 2005Q4

REPORT INFORMATION
  Report Type: 
  Country: None (occurrence: None)
  Receive Date: 20051006
  Receipt Date: 20051006
  Transmission Date: 20060501
  Serious: Yes (Other)
  Sender: FDA-Public Use
  Company Number: None

PATIENT
  Sex: Female
  Weight: 54.4316 kg

DRUGS (1)
  1. TIMOPTIC [Suspect]
     Dosage: ONE DROP IN EACH EYE TWICE DAILY OPHTHALMIC
     Route: 047
     Dates: start: 20040401, end: 20051005

REACTIONS (4)
  - APPLICATION SITE IRRITATION [None]
  - EYE IRRITATION [None]
  - EYE PAIN [None]
  - PHARMACEUTICAL PRODUCT COMPLAINT [None]
